FAERS Safety Report 7346666-8 (Version None)
Quarter: 2011Q1

REPORT INFORMATION
  Report Type: 
  Country: None (occurrence: None)
  Receive Date: 20110228
  Receipt Date: 20110221
  Transmission Date: 20110831
  Serious: Yes (Congenital Anomaly)
  Sender: FDA-Public Use
  Company Number: GER/UKI/11/0017482

PATIENT
  Sex: Female
  Weight: 3.56 kg

DRUGS (5)
  1. HYDROXOCOBALAMIN [Suspect]
     Indication: VITAMIN B12 DEFICIENCY
     Dosage: 3 DOSAGE FORMS, 1 IN 1 M, TRANSPLACENTAL
     Route: 064
     Dates: start: 20091216
  2. FOLIC ACID [Suspect]
     Indication: PREGNANCY
     Dosage: 1 DOSAGE FORMS, 1 IN 1 D, TRANSPLACENTAL
     Route: 064
     Dates: start: 20090501
  3. LYRICA [Suspect]
     Dosage: 2 DOSAGE FORMS, 2 IN 1 D, TRANSPLACENTAL
     Route: 064
     Dates: start: 20080815
  4. OMEPRAZOLE [Suspect]
     Indication: GASTROINTESTINAL ULCER
     Dosage: 20 MG, 1 IN 1 D, TRANSPLACENTAL
     Route: 064
     Dates: start: 20081016
  5. CO-CODAMOL (PANADEINE CO) [Suspect]
     Dosage: 2 DOSAGE FORMS, AS REQUIRED, TRANSPLACENTAL
     Route: 064
     Dates: start: 20090106

REACTIONS (5)
  - PELVIC DEFORMITY [None]
  - MATERNAL DRUGS AFFECTING FOETUS [None]
  - FORCEPS DELIVERY [None]
  - HIP DYSPLASIA [None]
  - NEONATAL INFECTION [None]
